FAERS Safety Report 6062991-5 (Version None)
Quarter: 2009Q1

REPORT INFORMATION
  Report Type: 
  Country: None (occurrence: None)
  Receive Date: 20090203
  Receipt Date: 20090128
  Transmission Date: 20090719
  Serious: Yes (Hospitalization)
  Sender: FDA-Public Use
  Company Number: B0556386A

PATIENT
  Age: 95 Year
  Sex: Male

DRUGS (6)
  1. CLAMOXYL [Suspect]
     Indication: BRONCHOPNEUMOPATHY
     Dosage: 1G THREE TIMES PER DAY
     Route: 048
     Dates: start: 20081220, end: 20090105
  2. TRIFLUCAN [Suspect]
     Indication: ORAL FUNGAL INFECTION
     Dosage: 50MG PER DAY
     Route: 048
     Dates: start: 20090102, end: 20090104
  3. MEMANTINE HCL [Concomitant]
     Dosage: 10MG PER DAY
     Route: 048
     Dates: start: 20081216, end: 20090104
  4. ATENOLOL [Concomitant]
     Dosage: 50MG PER DAY
     Route: 048
  5. LASILIX [Concomitant]
     Dosage: 20MG PER DAY
     Route: 048
  6. KARDEGIC [Concomitant]
     Dosage: 160MG PER DAY
     Route: 048

REACTIONS (7)
  - BLOOD CREATININE INCREASED [None]
  - C-REACTIVE PROTEIN INCREASED [None]
  - GENERAL PHYSICAL HEALTH DETERIORATION [None]
  - NEUTROPHILIA [None]
  - ORAL CANDIDIASIS [None]
  - PURPURA [None]
  - VASCULAR PURPURA [None]
